FAERS Safety Report 4973900-1 (Version None)
Quarter: 2006Q2

REPORT INFORMATION
  Report Type: 
  Country: None (occurrence: None)
  Receive Date: 20060410
  Receipt Date: 20060328
  Transmission Date: 20061013
  Serious: Yes (Hospitalization, Other)
  Sender: FDA-Public Use
  Company Number: HQWYE816304AUG04

PATIENT
  Age: 44 Year
  Sex: Female
  Weight: 80.81 kg

DRUGS (6)
  1. PREMARIN [Suspect]
  2. ESTRACE [Suspect]
     Dates: start: 19950601, end: 19980501
  3. ESTRIOL (ESTRIOL, ) [Suspect]
  4. ORTHO TRI-CYCLEN [Suspect]
  5. PROGESTERONE [Suspect]
  6. YASMIN [Suspect]

REACTIONS (9)
  - ANXIETY [None]
  - BREAST CANCER FEMALE [None]
  - BREAST CANCER METASTATIC [None]
  - BREAST MICROCALCIFICATION [None]
  - DEPRESSION [None]
  - FAT NECROSIS [None]
  - LIPOMA OF BREAST [None]
  - METASTASES TO LYMPH NODES [None]
  - TUMOUR NECROSIS [None]
